FAERS Safety Report 6555148-2 (Version None)
Quarter: 2010Q1

REPORT INFORMATION
  Report Type: 
  Country: None (occurrence: None)
  Receive Date: 20100125
  Receipt Date: 20100108
  Transmission Date: 20100710
  Serious: Yes (Hospitalization, Other)
  Sender: FDA-Public Use
  Company Number: AUR-APL-2010-00087

PATIENT
  Age: 68 Year
  Sex: Female
  Weight: 69.9 kg

DRUGS (10)
  1. MIRTAZAPINE [Suspect]
     Indication: ANXIETY
     Dosage: 30 MG - DAILY- ORAL
     Route: 048
     Dates: start: 20091205, end: 20091209
  2. MIRTAZAPINE [Suspect]
     Indication: ANXIETY
     Dosage: 15 MG - DAILY - ORAL
     Route: 048
     Dates: start: 20091114, end: 20091205
  3. ANASTROZOLE [Concomitant]
  4. CITALOPRAM [Concomitant]
  5. DIAZEPAM [Concomitant]
  6. LEVOTHYROXINE SODIUM [Concomitant]
  7. PROPRANOLOL [Concomitant]
  8. TRIFLUOPERAZINE [Concomitant]
  9. VITAMIN B COMPLEX CAP [Concomitant]
  10. WARFARIN SODIUM [Concomitant]

REACTIONS (3)
  - DIZZINESS [None]
  - HYPOKALAEMIA [None]
  - VISION BLURRED [None]
